FAERS Safety Report 9509010 (Version 1)
Quarter: 2013Q3

REPORT INFORMATION
  Report Type: Spontaneous
  Country: SA (occurrence: SA)
  Receive Date: 20130909
  Receipt Date: 20130909
  Transmission Date: 20140515
  Serious: Yes (Death, Hospitalization, Other)
  Sender: FDA-Public Use
  Company Number: SA-GILEAD-2013-0082863

PATIENT
  Age: 42 Year
  Sex: Male

DRUGS (6)
  1. EMTRICITABINE [Suspect]
     Indication: HIV INFECTION
  2. TENOFOVIR DISOPROXIL FUMARATE [Suspect]
     Indication: HIV INFECTION
  3. RITONAVIR [Suspect]
     Indication: HIV INFECTION
  4. DARUNAVIR [Suspect]
     Indication: HIV INFECTION
  5. CLARITHROMYCIN [Concomitant]
     Indication: OPPORTUNISTIC INFECTION PROPHYLAXIS
  6. ATOVAQUONE [Concomitant]
     Indication: OPPORTUNISTIC INFECTION PROPHYLAXIS

REACTIONS (1)
  - Immune reconstitution inflammatory syndrome [Fatal]
